FAERS Safety Report 11953911 (Version 2)
Quarter: 2016Q1

REPORT INFORMATION
  Report Type: Report from Study
  Country: BR (occurrence: BR)
  Receive Date: 20160126
  Receipt Date: 20160209
  Transmission Date: 20160526
  Serious: Yes (Other)
  Sender: FDA-Public Use
  Company Number: PHHY2015BR110343

PATIENT
  Sex: Female
  Weight: 52 kg

DRUGS (2)
  1. AFINITOR [Suspect]
     Active Substance: EVEROLIMUS
     Indication: RENAL CANCER
     Dosage: 10 MG, QD
     Route: 048
     Dates: start: 2012
  2. SUTENT [Concomitant]
     Active Substance: SUNITINIB MALATE
     Indication: PRODUCT USED FOR UNKNOWN INDICATION
     Route: 065

REACTIONS (9)
  - Drug ineffective [Unknown]
  - Hypophagia [Unknown]
  - Nausea [Unknown]
  - Diabetes mellitus [Unknown]
  - Thirst [Unknown]
  - Drug intolerance [Unknown]
  - Gastrointestinal neoplasm [Unknown]
  - Malignant neoplasm progression [Unknown]
  - Mouth injury [Unknown]
